FAERS Safety Report 8059946-8 (Version None)
Quarter: 2012Q1

REPORT INFORMATION
  Report Type: 
  Country: None (occurrence: None)
  Receive Date: 20120120
  Receipt Date: 20120112
  Transmission Date: 20120608
  Serious: Yes (Other)
  Sender: FDA-Public Use
  Company Number: PHHY2012BR003084

PATIENT
  Sex: Male

DRUGS (6)
  1. CLOZAPINE [Suspect]
     Indication: ARRHYTHMIA
  2. LITHIUM CARBONATE [Suspect]
     Indication: ARRHYTHMIA
  3. CLOZAPINE [Suspect]
     Indication: SCHIZOPHRENIA
     Dosage: 100 MG
  4. DEPAKENE [Suspect]
     Indication: SCHIZOPHRENIA
  5. DEPAKENE [Suspect]
     Indication: ARRHYTHMIA
  6. LITHIUM CARBONATE [Suspect]
     Indication: SCHIZOPHRENIA

REACTIONS (1)
  - SUICIDE ATTEMPT [None]
